FAERS Safety Report 5187762-3 (Version None)
Quarter: 2006Q4

REPORT INFORMATION
  Report Type: 
  Country: None (occurrence: None)
  Receive Date: 20061221
  Receipt Date: 20061218
  Transmission Date: 20070319
  Serious: Yes (Hospitalization)
  Sender: FDA-Public Use
  Company Number: FR-JNJFOC-20050504670

PATIENT
  Sex: Female

DRUGS (6)
  1. REMINYL [Suspect]
     Indication: DEMENTIA ALZHEIMER'S TYPE
     Route: 048
  2. PROZAC [Concomitant]
  3. ZOCOR [Concomitant]
  4. TANAKAN [Concomitant]
     Dosage: 1 DOSE = 1 TABLET
  5. ASPIRIN [Concomitant]
  6. ENDOTELON [Concomitant]

REACTIONS (5)
  - DIVERTICULUM [None]
  - GOITRE [None]
  - OSTEOPOROSIS [None]
  - RENAL CYST [None]
  - WEIGHT DECREASED [None]
